FAERS Safety Report 9526461 (Version 3)
Quarter: 2013Q3

REPORT INFORMATION
  Report Type: Spontaneous
  Country: JP (occurrence: JP)
  Receive Date: 20130916
  Receipt Date: 20130927
  Transmission Date: 20140515
  Serious: Yes (Hospitalization)
  Sender: FDA-Public Use
  Company Number: JP-JNJFOC-20130800468

PATIENT
  Age: 67 Year
  Sex: Male

DRUGS (1)
  1. TRAMCET [Suspect]
     Indication: PAIN
     Route: 048

REACTIONS (2)
  - Pneumonia aspiration [Recovered/Resolved]
  - Cheilitis [Unknown]
